FAERS Safety Report 20658510 (Version 3)
Quarter: 2022Q2

REPORT INFORMATION
  Report Type: Report from Study
  Country: US (occurrence: None)
  Receive Date: 20220331
  Receipt Date: 20220513
  Transmission Date: 20220721
  Serious: Yes (Death, Hospitalization)
  Sender: FDA-Public Use
  Company Number: 2022A124171

PATIENT
  Age: 74 Year
  Sex: Female

DRUGS (42)
  1. INVESTIGATIONAL PRODUCT [Suspect]
     Active Substance: INVESTIGATIONAL PRODUCT
     Indication: Pancreatic carcinoma metastatic
     Dosage: 1.5G ONCE/SINGLE ADMINISTRATION
     Route: 042
     Dates: start: 20220224, end: 20220224
  2. INVESTIGATIONAL PRODUCT [Suspect]
     Active Substance: INVESTIGATIONAL PRODUCT
     Indication: Pancreatic carcinoma metastatic
     Dosage: 1.5G ONCE/SINGLE ADMINISTRATION
     Route: 042
     Dates: start: 20220310, end: 20220310
  3. DURVALUMAB [Suspect]
     Active Substance: DURVALUMAB
     Indication: Pancreatic carcinoma metastatic
     Dosage: 1.5G ONCE/SINGLE ADMINISTRATION
     Route: 042
     Dates: start: 20220224, end: 20220224
  4. GEMCITABINE [Suspect]
     Active Substance: GEMCITABINE
     Indication: Pancreatic carcinoma metastatic
     Route: 042
     Dates: start: 20220224, end: 20220310
  5. PACLITAXEL [Suspect]
     Active Substance: PACLITAXEL
     Indication: Pancreatic carcinoma metastatic
     Route: 042
     Dates: start: 20220224, end: 20220310
  6. METFORMIN [Concomitant]
     Active Substance: METFORMIN HYDROCHLORIDE
     Indication: Type 2 diabetes mellitus
     Route: 048
     Dates: start: 20220119
  7. INSULIN GLARGINE [Concomitant]
     Active Substance: INSULIN GLARGINE
     Indication: Type 2 diabetes mellitus
     Route: 058
     Dates: start: 202109
  8. TIOTROPIUM [Concomitant]
     Active Substance: TIOTROPIUM
     Indication: Asthma
     Route: 055
     Dates: start: 20210929
  9. HYDROCHLOROTHIAZIDE [Concomitant]
     Active Substance: HYDROCHLOROTHIAZIDE
     Indication: Hypertension
     Route: 048
     Dates: start: 200501
  10. LEVOTHYROXINE [Concomitant]
     Active Substance: LEVOTHYROXINE
     Indication: Hypothyroidism
     Route: 048
     Dates: start: 202109
  11. ALENDRONATE [Concomitant]
     Active Substance: ALENDRONATE SODIUM
     Indication: Osteoporosis
     Route: 048
     Dates: start: 20210309
  12. TYLENOL [Concomitant]
     Active Substance: ACETAMINOPHEN
     Indication: Abdominal pain
     Dosage: 500 MG Q6H PRN
     Route: 048
     Dates: start: 202201
  13. TYLENOL [Concomitant]
     Active Substance: ACETAMINOPHEN
     Indication: Back pain
     Dosage: 500 MG Q6H PRN
     Route: 048
     Dates: start: 202201
  14. MORPHINE [Concomitant]
     Active Substance: MORPHINE
     Indication: Abdominal pain
     Dosage: 15 MG Q12H PRN
     Route: 048
     Dates: start: 20220203, end: 20220210
  15. MORPHINE [Concomitant]
     Active Substance: MORPHINE
     Indication: Back pain
     Dosage: 15 MG Q12H PRN
     Route: 048
     Dates: start: 20220203, end: 20220210
  16. MORPHINE [Concomitant]
     Active Substance: MORPHINE
     Indication: Abdominal pain
     Dosage: 30 MG Q12H PRN
     Route: 048
     Dates: start: 20220211, end: 20220302
  17. MORPHINE [Concomitant]
     Active Substance: MORPHINE
     Indication: Back pain
     Dosage: 30 MG Q12H PRN
     Route: 048
     Dates: start: 20220211, end: 20220302
  18. MORPHINE [Concomitant]
     Active Substance: MORPHINE
     Indication: Abdominal pain
     Dosage: 15 MG Q4-6H PRN
     Route: 048
     Dates: start: 20220211
  19. MORPHINE [Concomitant]
     Active Substance: MORPHINE
     Indication: Back pain
     Dosage: 15 MG Q4-6H PRN
     Route: 048
     Dates: start: 20220211
  20. MORPHINE [Concomitant]
     Active Substance: MORPHINE
     Indication: Abdominal pain
     Route: 048
     Dates: start: 20220303, end: 20220317
  21. MORPHINE [Concomitant]
     Active Substance: MORPHINE
     Indication: Back pain
     Route: 048
     Dates: start: 20220303, end: 20220317
  22. MORPHINE [Concomitant]
     Active Substance: MORPHINE
     Indication: Abdominal pain
     Route: 048
     Dates: start: 20220318, end: 20220319
  23. MORPHINE [Concomitant]
     Active Substance: MORPHINE
     Indication: Back pain
     Route: 048
     Dates: start: 20220318, end: 20220319
  24. MORPHINE [Concomitant]
     Active Substance: MORPHINE
     Indication: Abdominal pain
     Route: 048
     Dates: start: 20220319, end: 20220320
  25. MORPHINE [Concomitant]
     Active Substance: MORPHINE
     Indication: Back pain
     Route: 048
     Dates: start: 20220319, end: 20220320
  26. CREON [Concomitant]
     Active Substance: PANCRELIPASE AMYLASE\PANCRELIPASE LIPASE\PANCRELIPASE PROTEASE
     Indication: Pancreatic failure
     Route: 048
     Dates: start: 20220203
  27. MIRALAX [Concomitant]
     Active Substance: POLYETHYLENE GLYCOL 3350
     Indication: Constipation
     Dosage: 17 G QD PRN
     Route: 048
     Dates: start: 20220207
  28. SERTRALINE [Concomitant]
     Active Substance: SERTRALINE HYDROCHLORIDE
     Indication: Anxiety
     Route: 048
     Dates: start: 20210929
  29. SERTRALINE [Concomitant]
     Active Substance: SERTRALINE HYDROCHLORIDE
     Indication: Depression
     Route: 048
     Dates: start: 20210929
  30. BACTRIM DS [Concomitant]
     Active Substance: SULFAMETHOXAZOLE\TRIMETHOPRIM
     Indication: Skin infection
     Dosage: 800-160 MG BID
     Route: 048
     Dates: start: 20220303, end: 20220305
  31. SENNA [Concomitant]
     Active Substance: SENNA LEAF\SENNOSIDES\SENNOSIDES A AND B
     Indication: Constipation
     Dosage: 8.6 MG QD-BID PRN
     Route: 048
     Dates: start: 20220302
  32. CEFEPIME [Concomitant]
     Active Substance: CEFEPIME HYDROCHLORIDE
     Indication: Skin infection
     Dosage: 2000.0MG ONCE/SINGLE ADMINISTRATION
     Route: 042
     Dates: start: 20220303, end: 20220303
  33. NEOSPORIN [Concomitant]
     Active Substance: BACITRACIN ZINC\NEOMYCIN SULFATE\POLYMYXIN B SULFATE
     Indication: Skin infection
     Dosage: 1 APPLICATION, QD-TID PRN
     Route: 061
     Dates: start: 20220228
  34. PEPCID [Concomitant]
     Active Substance: FAMOTIDINE
     Indication: Chronic gastritis
     Dosage: 40.0MG ONCE/SINGLE ADMINISTRATION
     Route: 042
     Dates: start: 20220307, end: 20220307
  35. SODIUM CHLORIDE [Concomitant]
     Active Substance: SODIUM CHLORIDE
     Indication: Diarrhoea
     Dosage: 1000.0ML AS REQUIRED
     Route: 042
     Dates: start: 20220307
  36. LOPERAMIDE [Concomitant]
     Active Substance: LOPERAMIDE
     Indication: Diarrhoea
     Dosage: 2 MG, QD PRN
     Route: 048
     Dates: start: 20220307
  37. HYDROCORTISONE [Concomitant]
     Active Substance: HYDROCORTISONE
     Indication: Rash maculo-papular
     Dosage: 1.0% AS REQUIRED
     Route: 061
     Dates: start: 20220303
  38. HYDROGEN PEROXIDE [Concomitant]
     Active Substance: HYDROGEN PEROXIDE
     Indication: Skin infection
     Dosage: 3.0% AS REQUIRED
     Route: 061
     Dates: start: 20220301
  39. ALTEPLASE [Concomitant]
     Active Substance: ALTEPLASE
     Indication: Vascular access complication
     Dosage: 2.0MG ONCE/SINGLE ADMINISTRATION
     Route: 042
     Dates: start: 20220310, end: 20220310
  40. MAALOX ANTACID [Concomitant]
     Active Substance: ALUMINUM HYDROXIDE\DIMETHICONE\MAGNESIUM HYDROXIDE
     Indication: Stomatitis
     Dosage: 5 ML, QID PRN
     Route: 048
     Dates: start: 20220314, end: 20220316
  41. LOMOTIL [Concomitant]
     Active Substance: ATROPINE SULFATE\DIPHENOXYLATE HYDROCHLORIDE
     Indication: Diarrhoea
     Dosage: 1 TABLET WITH EACH LOOSE STOOLS
     Route: 048
     Dates: start: 20220313
  42. PREPARATION H NOS [Concomitant]
     Active Substance: COCOA BUTTER\PETROLATUM\PHENYLEPHRINE HYDROCHLORIDE\PHENYLEPHRINE HYDROCHLORIDE OR MINERAL OIL
     Indication: Proctalgia
     Dosage: 1 APPLICATION BID PRN
     Route: 061
     Dates: start: 20220312, end: 20220316

REACTIONS (1)
  - Gastroenteritis [Fatal]

NARRATIVE: CASE EVENT DATE: 20220316
